FAERS Safety Report 5705320-6 (Version None)
Quarter: 2008Q2

REPORT INFORMATION
  Report Type: 
  Country: None (occurrence: None)
  Receive Date: 20080410
  Receipt Date: 20080327
  Transmission Date: 20081010
  Serious: Yes (Hospitalization)
  Sender: FDA-Public Use
  Company Number: 2008-00532

PATIENT
  Age: 60 Year
  Sex: Male
  Weight: 72.7 kg

DRUGS (10)
  1. VINCRISTINE [Suspect]
     Indication: MULTIPLE MYELOMA
     Dosage: 0.4 MG, INTRAVENOUS
     Route: 042
     Dates: start: 20080204, end: 20080207
  2. DOXORUBICIN HCL [Suspect]
     Indication: MULTIPLE MYELOMA
     Dosage: 17 MG, INTRAVENOUS
     Route: 042
     Dates: start: 20080204, end: 20080207
  3. DEXAMETHASONE TAB [Suspect]
     Indication: MULTIPLE MYELOMA
     Dosage: 40 MG, ORAL
     Route: 048
     Dates: start: 20080204, end: 20080207
  4. FLUCONAZOLE [Suspect]
     Indication: DRUG USE FOR UNKNOWN INDICATION
     Dosage: 200 MG, ORAL
     Route: 048
     Dates: start: 20080204, end: 20080207
  5. SULFAMETHOXAZOLE AND TRIMETHOPRIM [Suspect]
     Indication: DRUG USE FOR UNKNOWN INDICATION
     Dosage: 60 MG, ORAL
     Route: 048
     Dates: start: 20080204, end: 20080207
  6. SALBUTAMOL (SALBUTAMOL) [Concomitant]
  7. ALLOPURINOL [Concomitant]
  8. ZOFRAN [Concomitant]
  9. PRIMPERAN TAB [Concomitant]
  10. MOVICOLON  (SODIUM BICARBONATE, SODIUM CHLORIDE, MACROGOL, POTASSIUM C [Concomitant]

REACTIONS (4)
  - METABOLIC ACIDOSIS [None]
  - MONOPARESIS [None]
  - STRESS [None]
  - TACHYPNOEA [None]
